FAERS Safety Report 4809125-X (Version None)
Quarter: 2005Q4

REPORT INFORMATION
  Report Type: 
  Country: None (occurrence: None)
  Receive Date: 20051021
  Receipt Date: 20051010
  Transmission Date: 20060501
  Serious: Yes (Hospitalization)
  Sender: FDA-Public Use
  Company Number: BR-2005-021280

PATIENT
  Age: 23 Year
  Sex: Female

DRUGS (2)
  1. YASMIN [Suspect]
     Indication: MENSTRUAL DISORDER
     Dosage: SEE IMAGE
     Route: 048
     Dates: start: 20050501, end: 20051006
  2. YASMIN [Suspect]
     Indication: MENSTRUAL DISORDER
     Dosage: SEE IMAGE
     Route: 048
     Dates: start: 20051009

REACTIONS (3)
  - INAPPROPRIATE SCHEDULE OF DRUG ADMINISTRATION [None]
  - NEPHROLITHIASIS [None]
  - VAGINAL HAEMORRHAGE [None]
